FAERS Safety Report 26121258 (Version 1)
Quarter: 2025Q4

REPORT INFORMATION
  Report Type: Spontaneous
  Country: US (occurrence: None)
  Receive Date: 20251203
  Receipt Date: 20251203
  Transmission Date: 20260118
  Serious: Yes (unspecified)
  Sender: FDA-CTU
  Company Number: None

PATIENT
  Age: 38 Year
  Sex: Male
  Weight: 69.2 kg

DRUGS (1)
  1. ANAVIP [Suspect]
     Active Substance: PIT VIPER (CROTALINAE) IMMUNE GLOBULIN ANTIVENIN (EQUINE)
     Indication: Snake bite
     Route: 042

REACTIONS (8)
  - Infusion related reaction [None]
  - Periorbital oedema [None]
  - Erythema [None]
  - Urticaria [None]
  - Heart rate increased [None]
  - Oxygen saturation decreased [None]
  - Hypotension [None]
  - Erythema [None]

NARRATIVE: CASE EVENT DATE: 20251016
